FAERS Safety Report 20239095 (Version 1)
Quarter: 2021Q4

REPORT INFORMATION
  Report Type: Spontaneous
  Country: US (occurrence: US)
  Receive Date: 20211228
  Receipt Date: 20211228
  Transmission Date: 20220303
  Serious: Yes (Other)
  Sender: FDA-Public Use
  Company Number: US-PFIZER INC-202101787929

PATIENT
  Age: 46 Year
  Sex: Female
  Weight: 77.107 kg

DRUGS (1)
  1. CHANTIX [Suspect]
     Active Substance: VARENICLINE TARTRATE
     Indication: Smoking cessation therapy
     Dosage: UNKNOWN DOSE STARTED 1MG UP TO 10MG NOT SURE
     Dates: start: 2013, end: 2019

REACTIONS (5)
  - Benign neoplasm [Unknown]
  - Cervix disorder [Unknown]
  - Fear of disease [Unknown]
  - Poor quality product administered [Unknown]
  - Recalled product administered [Unknown]
